APPROVED DRUG PRODUCT: BANTHINE
Active Ingredient: METHANTHELINE BROMIDE
Strength: 50MG
Dosage Form/Route: TABLET;ORAL
Application: N007390 | Product #001
Applicant: SHIRE DEVELOPMENT INC
Approved: Approved Prior to Jan 1, 1982 | RLD: No | RS: No | Type: DISCN